FAERS Safety Report 9894765 (Version 5)
Quarter: 2014Q2

REPORT INFORMATION
  Report Type: Spontaneous
  Country: BR (occurrence: BR)
  Receive Date: 20140213
  Receipt Date: 20140401
  Transmission Date: 20141212
  Serious: Yes (Death, Hospitalization)
  Sender: FDA-Public Use
  Company Number: BR-SA-2014SA008383

PATIENT
  Age: 31 Year
  Sex: Male

DRUGS (1)
  1. CEREZYME [Suspect]
     Indication: GAUCHER^S DISEASE
     Dosage: DOSE : 6 VIALS EVERY 15 DAYS DOSE:400 UNIT(S)
     Route: 042
     Dates: start: 19950611, end: 20140117

REACTIONS (5)
  - Septic shock [Fatal]
  - Pemphigus [Unknown]
  - Injury [Unknown]
  - Pain [Unknown]
  - Infection [Unknown]
